FAERS Safety Report 19589910 (Version 1)
Quarter: 2021Q3

REPORT INFORMATION
  Report Type: Spontaneous
  Country: US (occurrence: US)
  Receive Date: 20210721
  Receipt Date: 20210721
  Transmission Date: 20211014
  Serious: Yes (Other)
  Sender: FDA-Public Use
  Company Number: US-PFIZER INC-2021868505

PATIENT
  Age: 46 Year
  Sex: Female

DRUGS (1)
  1. XELJANZ [Suspect]
     Active Substance: TOFACITINIB CITRATE
     Dosage: UNK

REACTIONS (10)
  - Dermatitis exfoliative generalised [Unknown]
  - Arthralgia [Unknown]
  - Erythema [Unknown]
  - Swelling [Unknown]
  - Hypoaesthesia [Unknown]
  - Musculoskeletal stiffness [Unknown]
  - Rash [Unknown]
  - Erythrodermic psoriasis [Unknown]
  - Pain [Unknown]
  - Alopecia [Unknown]
